FAERS Safety Report 18068571 (Version 3)
Quarter: 2021Q3

REPORT INFORMATION
  Report Type: Report from Study
  Country: MX (occurrence: MX)
  Receive Date: 20200724
  Receipt Date: 20210714
  Transmission Date: 20211014
  Serious: Yes (Other)
  Sender: FDA-Public Use
  Company Number: NVSC2020MX207189

PATIENT
  Age: 77 Year
  Sex: Female
  Weight: 71 kg

DRUGS (3)
  1. FEMARA [Suspect]
     Active Substance: LETROZOLE
     Indication: BREAST CANCER
     Dosage: 2.5 MG, QD
     Route: 048
     Dates: start: 2019
  2. LEMOPHAR [Concomitant]
     Indication: SLEEP DISORDER
     Dosage: 0.25 DF, QD (10 MG)
     Route: 048
     Dates: start: 20210702
  3. CALTRATE [Concomitant]
     Active Substance: CALCIUM CARBONATE
     Indication: ARTHRITIS
     Dosage: 1 DF, QD (600 D)
     Route: 048
     Dates: start: 202106

REACTIONS (5)
  - Confusional state [Recovering/Resolving]
  - Fall [Recovered/Resolved]
  - Headache [Recovering/Resolving]
  - Retinal artery occlusion [Recovering/Resolving]
  - Ocular discomfort [Unknown]

NARRATIVE: CASE EVENT DATE: 20200710
